FAERS Safety Report 18551749 (Version 2)
Quarter: 2022Q3

REPORT INFORMATION
  Report Type: Report from Study
  Country: DE (occurrence: DE)
  Receive Date: 20201126
  Receipt Date: 20220908
  Transmission Date: 20221027
  Serious: Yes (Hospitalization, Other)
  Sender: FDA-Public Use
  Company Number: None

PATIENT
  Age: 82 Year
  Sex: Female

DRUGS (4)
  1. UNSPECIFIED INGREDIENT [Suspect]
     Active Substance: UNSPECIFIED INGREDIENT
     Indication: Product used for unknown indication
     Dosage: UNK
     Route: 065
  2. IBUPROFEN [Suspect]
     Active Substance: IBUPROFEN
     Indication: Analgesic intervention supportive therapy
     Dosage: 800 MG, QW
     Route: 065
  3. IBUPROFEN [Suspect]
     Active Substance: IBUPROFEN
     Indication: Psoriatic arthropathy
  4. METHOTREXATE [Concomitant]
     Active Substance: METHOTREXATE
     Indication: Product used for unknown indication
     Dosage: 10 MG, QW
     Route: 058
     Dates: start: 20200404

REACTIONS (10)
  - Psoriatic arthropathy [Recovered/Resolved]
  - Rheumatoid arthritis [Recovered/Resolved]
  - Type 2 diabetes mellitus [Unknown]
  - Fall [Unknown]
  - Nausea [Unknown]
  - Aphthous ulcer [Unknown]
  - Diarrhoea [Unknown]
  - Tooth infection [Unknown]
  - Tachyarrhythmia [Unknown]
  - Cystitis [Unknown]

NARRATIVE: CASE EVENT DATE: 20200315
